FAERS Safety Report 5691395-X (Version None)
Quarter: 2008Q2

REPORT INFORMATION
  Report Type: 
  Country: None (occurrence: None)
  Receive Date: 20080402
  Receipt Date: 20080226
  Transmission Date: 20081010
  Serious: No
  Sender: FDA-Public Use
  Company Number: US-BAYER-200815562NA

PATIENT
  Sex: Male
  Weight: 96 kg

DRUGS (1)
  1. MAGNEVIST PRE-FILLED SYRINGE [Suspect]
     Indication: NUCLEAR MAGNETIC RESONANCE IMAGING BRAIN
     Route: 042

REACTIONS (2)
  - MALAISE [None]
  - VOMITING [None]
